FAERS Safety Report 24751891 (Version 1)
Quarter: 2024Q4

REPORT INFORMATION
  Report Type: Spontaneous
  Country: ES (occurrence: ES)
  Receive Date: 20241219
  Receipt Date: 20241219
  Transmission Date: 20250115
  Serious: Yes (Hospitalization)
  Sender: TEVA
  Company Number: None

PATIENT
  Age: 76 Year
  Sex: Male

DRUGS (3)
  1. OXALIPLATIN [Interacting]
     Active Substance: OXALIPLATIN
     Indication: Colon cancer metastatic
     Dosage: OXALIPLATIN (7351A)
     Route: 042
     Dates: start: 20230808, end: 20240507
  2. FLUOROURACIL [Interacting]
     Active Substance: FLUOROURACIL
     Indication: Colon cancer metastatic
     Dosage: FLUOROURACILO (272A)
     Route: 042
     Dates: start: 20230808, end: 20240507
  3. BEVACIZUMAB [Interacting]
     Active Substance: BEVACIZUMAB
     Indication: Colon cancer metastatic
     Dosage: BEVACIZUMAB (2952A)
     Route: 042
     Dates: start: 20230808, end: 20240507

REACTIONS (3)
  - Cardio-respiratory arrest [Recovered/Resolved]
  - Atrial fibrillation [Recovered/Resolved]
  - Stress cardiomyopathy [Recovered/Resolved]

NARRATIVE: CASE EVENT DATE: 20240510
